FAERS Safety Report 4810780-9 (Version None)
Quarter: 2005Q4

REPORT INFORMATION
  Report Type: 
  Country: None (occurrence: None)
  Receive Date: 20051024
  Receipt Date: 20051011
  Transmission Date: 20060501
  Serious: Yes (Hospitalization, Other)
  Sender: FDA-Public Use
  Company Number: 2005141285

PATIENT
  Sex: Female
  Weight: 88.4514 kg

DRUGS (3)
  1. DIFLUCAN [Suspect]
     Indication: FUNGAL INFECTION
     Dosage: 200 MG (200 MG, DAILY
     Dates: start: 20020101
  2. INSULIN [Concomitant]
  3. ASPIRIN [Concomitant]

REACTIONS (2)
  - CEREBROVASCULAR ACCIDENT [None]
  - MYOCARDIAL INFARCTION [None]
